FAERS Safety Report 9795828 (Version 2)
Quarter: 2014Q1

REPORT INFORMATION
  Report Type: Spontaneous
  Country: US (occurrence: US)
  Receive Date: 20140103
  Receipt Date: 20140103
  Transmission Date: 20141002
  Serious: Yes (Death, Hospitalization)
  Sender: FDA-Public Use
  Company Number: US-ASTELLAS-2011US007271

PATIENT
  Age: 55 Year
  Sex: Male
  Weight: 92 kg

DRUGS (13)
  1. PROGRAF [Suspect]
     Indication: HEART TRANSPLANT
     Dosage: 0.5 MG, UID/QD
     Route: 048
     Dates: start: 20060618, end: 20131205
  2. PROGRAF [Suspect]
     Dosage: 1.5 MG, UID/QD
     Route: 048
  3. CELLCEPT [Concomitant]
     Indication: HEART TRANSPLANT
     Dosage: 1000 MG, BID
     Route: 048
  4. PREDNISONE [Concomitant]
     Indication: MUSCLE DISORDER
     Dosage: 10 MG, UID/QD
     Route: 048
  5. AMIODARONE [Concomitant]
     Indication: ARRHYTHMIA PROPHYLAXIS
     Dosage: 200 MG, UID/QD
     Route: 048
  6. VITAMIN D NOS [Concomitant]
     Indication: SUPPLEMENTATION THERAPY
     Dosage: UNK
     Route: 065
  7. PRILOSEC [Concomitant]
     Indication: DYSPEPSIA
     Dosage: 20 MG, UID/QD
     Route: 048
  8. LIPITOR [Concomitant]
     Indication: BLOOD CHOLESTEROL
     Dosage: 10 MG, UID/QD
     Route: 048
  9. TRIPHROCAPS CELL GEL VITAMIN B12 [Concomitant]
     Indication: SUPPLEMENTATION THERAPY
     Dosage: UNK
     Route: 065
  10. ROPINIROLE [Concomitant]
     Indication: MUSCLE SPASMS
     Dosage: 0.5 MG, 3XWEEKLY
     Route: 048
  11. MIDODRINE [Concomitant]
     Indication: BLOOD PRESSURE
     Dosage: 5 MG, 3XWEEKLY
     Route: 048
  12. INSULIN [Concomitant]
     Indication: PRODUCT USED FOR UNKNOWN INDICATION
     Dosage: 30 U, UID/QD
     Route: 058
  13. INSULIN, REGULAR [Concomitant]
     Indication: PRODUCT USED FOR UNKNOWN INDICATION
     Dosage: 12 U, UID/QD
     Route: 058

REACTIONS (4)
  - Drug ineffective [Unknown]
  - Death [Fatal]
  - Heart transplant rejection [Unknown]
  - Fluid retention [Unknown]
